FAERS Safety Report 24116688 (Version 1)
Quarter: 2024Q3

REPORT INFORMATION
  Report Type: Spontaneous
  Country: US (occurrence: US)
  Receive Date: 20240722
  Receipt Date: 20240722
  Transmission Date: 20241017
  Serious: No
  Sender: CSL Plasma
  Company Number: US-CSLP-07811709753-V00EGE9A-19

PATIENT
  Age: 44 Year
  Sex: Female

DRUGS (4)
  1. ANTICOAGULANT SODIUM CITRATE [Suspect]
     Active Substance: SODIUM CITRATE
     Indication: Anticoagulant therapy
     Route: 050
     Dates: start: 20240625, end: 20240625
  2. IBUPROFEN [Concomitant]
     Active Substance: IBUPROFEN
     Indication: Pain
  3. PAROXETINE [Concomitant]
     Active Substance: PAROXETINE
     Indication: Anxiety
  4. LABETALOL [Concomitant]
     Active Substance: LABETALOL\LABETALOL HYDROCHLORIDE
     Indication: Hypertension

REACTIONS (9)
  - Pain [Recovered/Resolved]
  - Muscle twitching [Recovered/Resolved]
  - Hypoaesthesia [Recovered/Resolved]
  - Muscle spasms [Recovered/Resolved]
  - Peripheral coldness [Recovered/Resolved]
  - Tremor [Recovered/Resolved]
  - Abdominal pain [Recovered/Resolved]
  - Dyskinesia [Recovered/Resolved]
  - Paraesthesia [Recovered/Resolved]

NARRATIVE: CASE EVENT DATE: 20240625
